FAERS Safety Report 6693966-0 (Version None)
Quarter: 2010Q2

REPORT INFORMATION
  Report Type: 
  Country: None (occurrence: None)
  Receive Date: 20100423
  Receipt Date: 20100412
  Transmission Date: 20101027
  Serious: Yes (Congenital Anomaly)
  Sender: FDA-Public Use
  Company Number: BE-PFIZER INC-2010045516

PATIENT
  Weight: 2.94 kg

DRUGS (2)
  1. SERLAIN [Suspect]
     Dosage: 100 MG, UNK
     Route: 064
  2. ELTHYRONE [Suspect]
     Dosage: 50 UG, UNK
     Route: 064

REACTIONS (2)
  - DRUG EXPOSURE DURING PREGNANCY [None]
  - TALIPES [None]
